FAERS Safety Report 5204282-8 (Version None)
Quarter: 2007Q1

REPORT INFORMATION
  Report Type: 
  Country: None (occurrence: None)
  Receive Date: 20070110
  Receipt Date: 20060201
  Transmission Date: 20070707
  Serious: No
  Sender: FDA-Public Use
  Company Number: US-BRISTOL-MYERS SQUIBB COMPANY-13267356

PATIENT
  Age: 48 Year
  Sex: Female
  Weight: 107 kg

DRUGS (4)
  1. ABILIFY [Suspect]
     Indication: SCHIZOAFFECTIVE DISORDER
     Dosage: 23DEC05 15 MG, 30DEC05 20 MG/D, 09JAN06 30 MG/D, UNK 30 MG QID (INSTEAD OF 45 MG/D), FEB06 30 MG BID
     Dates: start: 20051223
  2. PAXIL [Concomitant]
  3. AMBIEN [Concomitant]
  4. SEROQUEL [Concomitant]

REACTIONS (2)
  - ACCIDENTAL OVERDOSE [None]
  - DRUG INEFFECTIVE [None]
